FAERS Safety Report 6330377-1 (Version None)
Quarter: 2009Q3

REPORT INFORMATION
  Report Type: 
  Country: None (occurrence: None)
  Receive Date: 20090826
  Receipt Date: 20090826
  Transmission Date: 20100115
  Serious: Yes (Hospitalization)
  Sender: FDA-Public Use
  Company Number: None

PATIENT
  Age: 53 Year
  Sex: Male
  Weight: 92.5 kg

DRUGS (1)
  1. PHENYTOIN [Suspect]
     Indication: CONVULSION
     Dosage: 300 MG HS PO
     Route: 048
     Dates: start: 20090803, end: 20090805

REACTIONS (2)
  - DRUG ERUPTION [None]
  - ERYTHEMA MULTIFORME [None]
